FAERS Safety Report 6211148-3 (Version None)
Quarter: 2009Q2

REPORT INFORMATION
  Report Type: 
  Country: None (occurrence: None)
  Receive Date: 20090602
  Receipt Date: 20090522
  Transmission Date: 20091009
  Serious: Yes (Other)
  Sender: FDA-Public Use
  Company Number: US-ROCHE-572588

PATIENT
  Sex: Female
  Weight: 55.8 kg

DRUGS (5)
  1. CAPECITABINE [Suspect]
     Indication: BREAST CANCER
     Dosage: STRENGTH 500 MG, STRENGTH 150 MG (4 TABLETS DAILY)
     Route: 048
     Dates: start: 20080225, end: 20080607
  2. CAPECITABINE [Suspect]
     Dosage: ONE WEEK ON ONE WEEK OFF
     Route: 048
  3. CAPECITABINE [Suspect]
     Route: 048
  4. CAPECITABINE [Suspect]
     Dosage: STRENGTH 500 MG, STRENGTH 150 MG (2 TABLETS TWICE DAILY)
     Route: 048
     Dates: end: 20090201
  5. TYKERB [Concomitant]
     Indication: BREAST CANCER

REACTIONS (5)
  - BREAST CANCER METASTATIC [None]
  - CARDIAC DISORDER [None]
  - CENTRAL NERVOUS SYSTEM LESION [None]
  - EJECTION FRACTION DECREASED [None]
  - FATIGUE [None]
